FAERS Safety Report 6615883-4 (Version None)
Quarter: 2010Q1

REPORT INFORMATION
  Report Type: 
  Country: None (occurrence: None)
  Receive Date: 20100305
  Receipt Date: 20100222
  Transmission Date: 20100710
  Serious: Yes (Other)
  Sender: FDA-Public Use
  Company Number: US-JNJFOC-20091207394

PATIENT
  Sex: Male
  Weight: 90.72 kg

DRUGS (2)
  1. INVEGA [Suspect]
     Indication: SCHIZOPHRENIA
     Route: 048
  2. VALIUM [Concomitant]
     Indication: NERVOUSNESS
     Route: 048

REACTIONS (4)
  - COUGH [None]
  - FEELING ABNORMAL [None]
  - FLUID RETENTION [None]
  - WEIGHT INCREASED [None]
